FAERS Safety Report 21493380 (Version 1)
Quarter: 2022Q4

REPORT INFORMATION
  Report Type: Spontaneous
  Country: BR (occurrence: BR)
  Receive Date: 20221021
  Receipt Date: 20221021
  Transmission Date: 20230113
  Serious: Yes (Death, Other)
  Sender: FDA-Public Use
  Company Number: BR-BRISTOL-MYERS SQUIBB COMPANY-2022-044550

PATIENT
  Age: 80 Year
  Sex: Female

DRUGS (2)
  1. REVLIMID [Suspect]
     Active Substance: LENALIDOMIDE
     Indication: Plasma cell myeloma
     Dosage: DOSE : 5 MG;     FREQ : DAILY, TAKE 21 DAYS, PAUSE 7 DAYS (28 DAY CYCLE)
     Route: 065
  2. REVLIMID [Suspect]
     Active Substance: LENALIDOMIDE
     Dosage: DOSE : 10 MG; FREQ: DAILY - TAKE 21 DAYS, PAUSE 7 DAYS (28 DAY CYCLE), 20 CAPSULES
     Route: 065

REACTIONS (2)
  - Product prescribing issue [Unknown]
  - Death [Fatal]
